FAERS Safety Report 5259127-7 (Version None)
Quarter: 2007Q1

REPORT INFORMATION
  Report Type: 
  Country: None (occurrence: None)
  Receive Date: 20070305
  Receipt Date: 20070220
  Transmission Date: 20070707
  Serious: Yes (Hospitalization)
  Sender: FDA-Public Use
  Company Number: 13616230

PATIENT
  Sex: Male
  Weight: 73.92 kg

DRUGS (4)
  1. EMSAM [Suspect]
     Indication: DEPRESSION
     Dosage: 6 MILLIGRAM, 24 HOUR
  2. ALCOHOL [Suspect]
  3. ARTHRITIS MEDICATION [Concomitant]
  4. CHOLESTEROL MEDICATION [Concomitant]

REACTIONS (3)
  - ALCOHOL USE [None]
  - DYSSTASIA [None]
  - FALL [None]
